FAERS Safety Report 17782390 (Version 1)
Quarter: 2020Q2

REPORT INFORMATION
  Report Type: Spontaneous
  Country: US (occurrence: US)
  Receive Date: 20200513
  Receipt Date: 20200513
  Transmission Date: 20200714
  Serious: Yes (Hospitalization)
  Sender: FDA-Public Use
  Company Number: None

PATIENT
  Age: 81 Year
  Sex: Male
  Weight: 82 kg

DRUGS (2)
  1. WARFARIN [Suspect]
     Active Substance: WARFARIN
     Indication: HYPERCOAGULATION
     Dates: start: 20200129, end: 20200302
  2. HEPARIN (HEPARIN CA 25000UNT/ML INJ) [Suspect]
     Active Substance: HEPARIN CALCIUM
     Indication: HYPERCOAGULATION
     Dates: start: 20200128, end: 20200202

REACTIONS (1)
  - Retroperitoneal haematoma [None]

NARRATIVE: CASE EVENT DATE: 20200202
